FAERS Safety Report 11264439 (Version 2)
Quarter: 2016Q3

REPORT INFORMATION
  Report Type: Spontaneous
  Country: US (occurrence: US)
  Receive Date: 20150713
  Receipt Date: 20160907
  Transmission Date: 20161109
  Serious: Yes (Other)
  Sender: FDA-Public Use
  Company Number: US-JNJFOC-20150611487

PATIENT
  Age: 66 Year
  Sex: Female
  Weight: 83.01 kg

DRUGS (15)
  1. LEVAQUIN [Suspect]
     Active Substance: LEVOFLOXACIN
     Indication: BRONCHITIS
     Route: 048
     Dates: start: 20120803, end: 20120805
  2. LEVAQUIN [Suspect]
     Active Substance: LEVOFLOXACIN
     Indication: CHEST PAIN
     Route: 048
     Dates: start: 20111201, end: 20111208
  3. LEVAQUIN [Suspect]
     Active Substance: LEVOFLOXACIN
     Indication: URINARY TRACT INFECTION
     Route: 048
     Dates: start: 20110606, end: 20110613
  4. LEVAQUIN [Suspect]
     Active Substance: LEVOFLOXACIN
     Indication: URINARY TRACT INFECTION
     Route: 048
     Dates: start: 20111201, end: 20111208
  5. LEVAQUIN [Suspect]
     Active Substance: LEVOFLOXACIN
     Indication: URINARY TRACT INFECTION
     Route: 042
     Dates: start: 20120801, end: 20120808
  6. LEVAQUIN [Suspect]
     Active Substance: LEVOFLOXACIN
     Indication: CHEST PAIN
     Route: 048
     Dates: start: 20110606, end: 20110613
  7. LEVAQUIN [Suspect]
     Active Substance: LEVOFLOXACIN
     Indication: URINARY TRACT INFECTION
     Route: 048
     Dates: start: 20120803, end: 20120805
  8. LEVAQUIN [Suspect]
     Active Substance: LEVOFLOXACIN
     Indication: CHEST PAIN
     Route: 042
     Dates: start: 20110606, end: 20111201
  9. LEVAQUIN [Suspect]
     Active Substance: LEVOFLOXACIN
     Indication: BRONCHITIS
     Route: 048
     Dates: start: 20111201, end: 20111208
  10. LEVAQUIN [Suspect]
     Active Substance: LEVOFLOXACIN
     Indication: URINARY TRACT INFECTION
     Route: 042
     Dates: start: 20110606, end: 20111201
  11. LEVAQUIN [Suspect]
     Active Substance: LEVOFLOXACIN
     Indication: BRONCHITIS
     Route: 048
     Dates: start: 20110606, end: 20110613
  12. LEVAQUIN [Suspect]
     Active Substance: LEVOFLOXACIN
     Indication: UPPER RESPIRATORY TRACT INFECTION
     Route: 042
     Dates: start: 20110606, end: 20111201
  13. LEVAQUIN [Suspect]
     Active Substance: LEVOFLOXACIN
     Indication: CHEST PAIN
     Route: 048
     Dates: start: 20120803, end: 20120805
  14. LEVAQUIN [Suspect]
     Active Substance: LEVOFLOXACIN
     Indication: CHEST PAIN
     Route: 042
     Dates: start: 20120801, end: 20120808
  15. LEVAQUIN [Suspect]
     Active Substance: LEVOFLOXACIN
     Indication: UPPER RESPIRATORY TRACT INFECTION
     Route: 042
     Dates: start: 20120801, end: 20120808

REACTIONS (3)
  - Polyneuropathy [Unknown]
  - Musculoskeletal injury [Unknown]
  - Neuropathy peripheral [Unknown]

NARRATIVE: CASE EVENT DATE: 201106
